FAERS Safety Report 9372773 (Version 1)
Quarter: 2013Q2

REPORT INFORMATION
  Report Type: Report from Study
  Country: US (occurrence: US)
  Receive Date: 20130627
  Receipt Date: 20130627
  Transmission Date: 20140414
  Serious: Yes (Life-Threatening)
  Sender: FDA-Public Use
  Company Number: US-MYLANLABS-2013S1008304

PATIENT
  Age: 44 Year
  Sex: Male

DRUGS (7)
  1. CLOZAPINE TABLETS [Suspect]
     Route: 048
     Dates: start: 201207, end: 20130411
  2. CLOZAPINE TABLETS [Suspect]
     Route: 048
     Dates: start: 201207, end: 20130411
  3. BENZTROPINE [Concomitant]
  4. HALOPERIDOL [Concomitant]
  5. LORAZEPAM [Concomitant]
  6. ZOLOFT [Concomitant]
  7. ALLOPURINOL [Concomitant]

REACTIONS (1)
  - Agranulocytosis [Not Recovered/Not Resolved]
